FAERS Safety Report 4386117-9 (Version None)
Quarter: 2004Q2

REPORT INFORMATION
  Report Type: 
  Country: None (occurrence: None)
  Receive Date: 20040625
  Receipt Date: 20040625
  Transmission Date: 20050107
  Serious: No
  Sender: FDA-Public Use
  Company Number: None

PATIENT
  Age: 48 Year
  Sex: Female
  Weight: 139.5 kg

DRUGS (1)
  1. HEPARIN [Suspect]
     Indication: ACUTE CORONARY SYNDROME
     Dosage: IV INFUSION
     Route: 042
     Dates: start: 20040507, end: 20040511

REACTIONS (5)
  - BLOODY DISCHARGE [None]
  - DRESSLER'S SYNDROME [None]
  - HAEMATOCRIT DECREASED [None]
  - HAEMOPTYSIS [None]
  - PLEURAL EFFUSION [None]
